FAERS Safety Report 14907847 (Version 2)
Quarter: 2018Q3

REPORT INFORMATION
  Report Type: Report from Study
  Country: FR (occurrence: FR)
  Receive Date: 20180517
  Receipt Date: 20180724
  Transmission Date: 20181010
  Serious: Yes (Death, Hospitalization, Other)
  Sender: FDA-Public Use
  Company Number: FR-JAZZ-2018-FR-007806

PATIENT

DRUGS (4)
  1. DEFITELIO [Suspect]
     Active Substance: DEFIBROTIDE SODIUM
     Indication: VENOOCCLUSIVE DISEASE
     Dosage: 24.7 MG/KG, QD
     Dates: start: 20140724, end: 20140810
  2. EXACYL [Concomitant]
     Active Substance: TRANEXAMIC ACID
     Indication: HAEMORRHAGE
     Dosage: 2 G, QD
     Route: 042
     Dates: start: 20141120, end: 20141204
  3. BACTRIM [Concomitant]
     Active Substance: SULFAMETHOXAZOLE\TRIMETHOPRIM
     Indication: PROPHYLAXIS
     Dosage: 400 MG, QD
     Route: 042
     Dates: start: 20141201, end: 20141204
  4. VFEND [Concomitant]
     Active Substance: VORICONAZOLE
     Indication: SEPSIS
     Dosage: 800 MG, QD
     Route: 042
     Dates: start: 20141113, end: 20141204

REACTIONS (3)
  - Cardiotoxicity [Fatal]
  - Cardio-respiratory arrest [Fatal]
  - Gastrointestinal haemorrhage [Unknown]

NARRATIVE: CASE EVENT DATE: 2014
